FAERS Safety Report 9912134 (Version 2)
Quarter: 2014Q1

REPORT INFORMATION
  Report Type: Report from Study
  Country: US (occurrence: US)
  Receive Date: 20140219
  Receipt Date: 20140219
  Transmission Date: 20141002
  Serious: Yes (Hospitalization)
  Sender: FDA-Public Use
  Company Number: US-BRISTOL-MYERS SQUIBB COMPANY-19196104

PATIENT
  Age: 5 Year
  Sex: Male

DRUGS (22)
  1. DASATINIB [Suspect]
     Indication: ACUTE LYMPHOCYTIC LEUKAEMIA
     Dosage: 55 UNITS NOS.?22OCT2013
     Route: 048
     Dates: start: 20130628
  2. IFOSFAMIDE [Suspect]
     Dates: start: 20131003, end: 20131005
  3. ETOPOSIDE [Suspect]
     Indication: ACUTE LYMPHOCYTIC LEUKAEMIA
     Dates: start: 20131030, end: 20131101
  4. HYDROCORTISONE [Suspect]
     Dates: end: 20131101
  5. 6-MERCAPTOPURINE [Suspect]
     Indication: ACUTE LYMPHOCYTIC LEUKAEMIA
     Dates: start: 20130717, end: 20130801
  6. ARA-C [Suspect]
     Indication: ACUTE LYMPHOCYTIC LEUKAEMIA
     Dosage: 26JUL13-29JUL13?09AUG13-12AUG13?19JUL-22JUL13?28OCT13-30OCT13?1NOV13
     Dates: start: 20130719, end: 20131101
  7. CYCLOPHOSPHAMIDE [Suspect]
     Indication: ACUTE LYMPHOCYTIC LEUKAEMIA
     Dates: start: 20130717, end: 20130717
  8. METHOTREXATE [Suspect]
     Indication: ACUTE LYMPHOCYTIC LEUKAEMIA
     Dosage: DATES 19JUL13, 1NOV13
     Dates: start: 20130719, end: 20131101
  9. DEXAMETHASONE [Suspect]
     Dosage: 2OCT13-06OCT13?28OCT13-01NOV13
     Dates: start: 20131002, end: 20131101
  10. VINCRISTINE [Suspect]
     Dosage: 03-OCT-2013 AND 07-OCT-2013
     Dates: start: 20131003
  11. DAUNORUBICIN [Suspect]
     Dates: start: 20131006, end: 20131007
  12. L-ASPARAGINASE [Suspect]
     Dates: start: 20131007, end: 20131102
  13. GRANULOCYTE COLONY-STIMULATING FACTOR NOS [Concomitant]
     Dates: start: 20130917
  14. SULFAMETHOXAZOLE + TRIMETHOPRIM [Concomitant]
     Dosage: 22JUN13,TABS
     Dates: start: 20130615
  15. OXYCODONE [Concomitant]
     Dosage: 26DEC13
     Dates: start: 20131226, end: 20131230
  16. POLYETHYLENE GLYCOL [Concomitant]
     Dates: start: 20130914, end: 20130922
  17. METRONIDAZOLE [Concomitant]
     Dates: start: 20130923, end: 20131007
  18. DOCUSATE SODIUM [Concomitant]
     Dates: start: 20131226, end: 20131229
  19. SIMETICONE [Concomitant]
     Dates: start: 20131226, end: 20131230
  20. POLYETHYLENE GLYCOL [Concomitant]
     Dates: start: 20131226, end: 20131226
  21. COLECALCIFEROL [Concomitant]
     Dates: start: 20131226
  22. ACETAMINOPHEN [Concomitant]
     Dates: start: 20131226, end: 20131226

REACTIONS (4)
  - Febrile neutropenia [Recovered/Resolved]
  - Bacteraemia [Recovered/Resolved]
  - Blood creatinine increased [Recovered/Resolved]
  - Stomatitis [Recovered/Resolved]
